FAERS Safety Report 8458891-3 (Version None)
Quarter: 2012Q2

REPORT INFORMATION
  Report Type: 
  Country: None (occurrence: None)
  Receive Date: 20120622
  Receipt Date: 20120613
  Transmission Date: 20120825
  Serious: Yes (Hospitalization)
  Sender: FDA-Public Use
  Company Number: US-BAYER-2012-018933

PATIENT
  Age: 18 Year
  Sex: Female
  Weight: 108.84 kg

DRUGS (13)
  1. YASMIN [Suspect]
     Indication: ACNE
  2. IBUPROFEN [Concomitant]
     Dosage: UNK
     Dates: start: 20090617
  3. YAZ [Suspect]
     Indication: ACNE
  4. YASMIN [Suspect]
  5. YASMIN [Suspect]
     Indication: PREMENSTRUAL SYNDROME
  6. DROSPIRENONE AND ETHINYL ESTRADIOL [Suspect]
     Indication: CONTRACEPTION
     Dosage: UNK
     Dates: start: 20091013, end: 20091202
  7. YASMIN [Suspect]
     Indication: CONTRACEPTION
     Dosage: UNK
     Dates: start: 20090806, end: 20091012
  8. DROSPIRENONE AND ETHINYL ESTRADIOL [Suspect]
     Indication: PREMENSTRUAL SYNDROME
  9. YAZ [Suspect]
     Indication: CONTRACEPTION
     Dosage: UNK
     Dates: start: 20080227, end: 20090624
  10. YAZ [Suspect]
     Indication: PREMENSTRUAL SYNDROME
  11. DROSPIRENONE AND ETHINYL ESTRADIOL [Suspect]
     Indication: ACNE
  12. YAZ [Suspect]
  13. DROSPIRENONE AND ETHINYL ESTRADIOL [Suspect]

REACTIONS (3)
  - BILIARY DYSKINESIA [None]
  - CHOLECYSTECTOMY [None]
  - PAIN [None]
